FAERS Safety Report 24340626 (Version 1)
Quarter: 2024Q3

REPORT INFORMATION
  Report Type: Spontaneous
  Country: US (occurrence: US)
  Receive Date: 20240919
  Receipt Date: 20240919
  Transmission Date: 20241017
  Serious: Yes (Hospitalization)
  Sender: FRESENIUS MEDICAL CARE
  Company Number: US-FMCRTG-FMC-2409-001157

PATIENT
  Sex: Female

DRUGS (1)
  1. DELFLEX WITH DEXTROSE 2.5% LOW MAGNESIUM LOW CALCIUM [Suspect]
     Active Substance: CALCIUM CHLORIDE\DEXTROSE\MAGNESIUM CHLORIDE\SODIUM CHLORIDE\SODIUM LACTATE
     Indication: End stage renal disease
     Dosage: 7DAYS A WEEK; 5 EXCHANGES, FV= 1500ML. TOTAL TIME 9HRS, DWELL 1.5HR
     Route: 033
     Dates: start: 20230413

REACTIONS (2)
  - Hypoglycaemia [Recovering/Resolving]
  - Hypotension [Recovering/Resolving]
